FAERS Safety Report 18506698 (Version 4)
Quarter: 2021Q1

REPORT INFORMATION
  Report Type: Report from Study
  Country: US (occurrence: US)
  Receive Date: 20201116
  Receipt Date: 20210323
  Transmission Date: 20210419
  Serious: Yes (Hospitalization, Other)
  Sender: FDA-Public Use
  Company Number: US-SHIRE-US202029740

PATIENT
  Sex: Female

DRUGS (1)
  1. GAMMAGARD LIQUID [Suspect]
     Active Substance: HUMAN IMMUNOGLOBULIN G
     Indication: IMMUNODEFICIENCY COMMON VARIABLE
     Dosage: UNK, UNKNOWN
     Route: 065

REACTIONS (23)
  - Irritable bowel syndrome [Unknown]
  - Lactose intolerance [Unknown]
  - Urinary tract infection [Unknown]
  - Heart valve incompetence [Unknown]
  - Klebsiella infection [Unknown]
  - Sinus disorder [Not Recovered/Not Resolved]
  - Bronchitis [Unknown]
  - Pseudomonas infection [Unknown]
  - Transient ischaemic attack [Unknown]
  - Dizziness [Unknown]
  - Conjunctivitis [Unknown]
  - Localised infection [Unknown]
  - Insomnia [Unknown]
  - Postural orthostatic tachycardia syndrome [Unknown]
  - Poor venous access [Unknown]
  - Kidney infection [Unknown]
  - Nasal ulcer [Unknown]
  - Oropharyngeal pain [Unknown]
  - Pneumonia bacterial [Unknown]
  - Upper-airway cough syndrome [Not Recovered/Not Resolved]
  - Muscle spasms [Unknown]
  - Fatigue [Not Recovered/Not Resolved]
  - Sinus disorder [Unknown]
